FAERS Safety Report 15608627 (Version 1)
Quarter: 2018Q4

REPORT INFORMATION
  Report Type: Spontaneous
  Country: CH (occurrence: CH)
  Receive Date: 20181112
  Receipt Date: 20181112
  Transmission Date: 20190205
  Serious: Yes (Other)
  Sender: FDA-Public Use
  Company Number: CH-SA-2018SA229291

PATIENT
  Age: 31 Year
  Sex: Male

DRUGS (3)
  1. AUBAGIO [Suspect]
     Active Substance: TERIFLUNOMIDE
     Indication: MULTIPLE SCLEROSIS
     Dosage: 14 MG, QD
     Route: 048
     Dates: start: 201403
  2. VITAMINE D [Concomitant]
     Indication: MULTIPLE SCLEROSIS
     Route: 048
  3. AUGMENTIN [AMOXICILLIN;CLAVULANIC ACID] [Concomitant]
     Indication: PYREXIA
     Dosage: UNK
     Dates: start: 20181005, end: 20181015

REACTIONS (2)
  - Cholelithiasis [Recovered/Resolved]
  - Pneumonia mycoplasmal [Not Recovered/Not Resolved]

NARRATIVE: CASE EVENT DATE: 2017
